FAERS Safety Report 6555636-9 (Version None)
Quarter: 2010Q1

REPORT INFORMATION
  Report Type: 
  Country: None (occurrence: None)
  Receive Date: 20100128
  Receipt Date: 20100125
  Transmission Date: 20100710
  Serious: Yes (Disabling, Other)
  Sender: FDA-Public Use
  Company Number: US-BRACCO-003229

PATIENT
  Sex: Female

DRUGS (3)
  1. OMNISCAN [Suspect]
     Route: 065
     Dates: start: 20050821, end: 20050821
  2. GADOLINIUM [Suspect]
     Route: 065
     Dates: start: 20061122, end: 20061122
  3. MULTIHANCE [Suspect]
     Route: 065
     Dates: start: 20061101, end: 20061101

REACTIONS (1)
  - NEPHROGENIC SYSTEMIC FIBROSIS [None]
